FAERS Safety Report 8643639 (Version 2)
Quarter: 2013Q1

REPORT INFORMATION
  Report Type: Spontaneous
  Country: US (occurrence: US)
  Receive Date: 20120629
  Receipt Date: 20130206
  Transmission Date: 20140127
  Serious: Yes (Congenital Anomaly, Other)
  Sender: FDA-Public Use
  Company Number: US-PFIZER INC-2012153883

PATIENT
  Sex: Male

DRUGS (4)
  1. ZOLOFT [Suspect]
     Dosage: UNK
     Route: 064
     Dates: start: 2000
  2. PRENATAL VITAMINS [Concomitant]
     Dosage: UNK
     Route: 064
  3. TYLENOL [Concomitant]
     Dosage: UNK
     Route: 064
  4. IBUPROFEN [Concomitant]
     Dosage: UNK
     Route: 064

REACTIONS (5)
  - Maternal exposure timing unspecified [Not Recovered/Not Resolved]
  - Anal atresia [Not Recovered/Not Resolved]
  - Congenital genitourinary abnormality [Not Recovered/Not Resolved]
  - Penoscrotal transposition [Unknown]
  - Rectourethral fistula [Unknown]
